FAERS Safety Report 6025536-1 (Version None)
Quarter: 2008Q4

REPORT INFORMATION
  Report Type: 
  Country: None (occurrence: None)
  Receive Date: 20081231
  Receipt Date: 20081229
  Transmission Date: 20090506
  Serious: Yes (Death, Hospitalization)
  Sender: FDA-Public Use
  Company Number: US-CELGENEUS-163-21880-08090467

PATIENT
  Sex: Male

DRUGS (2)
  1. REVLIMID [Suspect]
     Indication: MULTIPLE MYELOMA
     Route: 048
     Dates: start: 20080908
  2. REVLIMID [Suspect]
     Dosage: 10-25MG
     Route: 048
     Dates: start: 20080825, end: 20081014

REACTIONS (3)
  - LOWER GASTROINTESTINAL HAEMORRHAGE [None]
  - MULTIPLE MYELOMA [None]
  - PANCYTOPENIA [None]
